FAERS Safety Report 12829300 (Version 1)
Quarter: 2016Q4

REPORT INFORMATION
  Report Type: Spontaneous
  Country: US (occurrence: US)
  Receive Date: 20161007
  Receipt Date: 20161007
  Transmission Date: 20170207
  Serious: No
  Sender: FDA-Public Use
  Company Number: US-SA-2016SA023549

PATIENT
  Age: 44 Year
  Sex: Female

DRUGS (17)
  1. TERIFLUNOMIDE [Suspect]
     Active Substance: TERIFLUNOMIDE
     Indication: MULTIPLE SCLEROSIS
     Route: 048
     Dates: start: 20151104
  2. VITAMIN D [Concomitant]
     Active Substance: CHOLECALCIFEROL
  3. METHYLPHENIDATE. [Concomitant]
     Active Substance: METHYLPHENIDATE
  4. SMZ-TMP [Concomitant]
     Active Substance: SULFAMETHOXAZOLE\TRIMETHOPRIM
  5. DICLOFENAC [Concomitant]
     Active Substance: DICLOFENAC
  6. HYDROCODONE BITARTRATE AND ACETAMINOPHEN [Concomitant]
     Active Substance: ACETAMINOPHEN\HYDROCODONE BITARTRATE
  7. ZOLPIDEM [Concomitant]
     Active Substance: ZOLPIDEM\ZOLPIDEM TARTRATE
  8. CEPHALEXIN. [Concomitant]
     Active Substance: CEPHALEXIN
  9. FROVA [Concomitant]
     Active Substance: FROVATRIPTAN SUCCINATE
  10. TOPAMAX [Concomitant]
     Active Substance: TOPIRAMATE
  11. PHENAZOPYRIDINE. [Concomitant]
     Active Substance: PHENAZOPYRIDINE
  12. NITROFURANTOIN. [Concomitant]
     Active Substance: NITROFURANTOIN
  13. LYRICA [Concomitant]
     Active Substance: PREGABALIN
  14. SUMATRIPTAN. [Concomitant]
     Active Substance: SUMATRIPTAN
  15. AMANTADINE [Concomitant]
     Active Substance: AMANTADINE
  16. CARISOPRODOL. [Concomitant]
     Active Substance: CARISOPRODOL
  17. ALPRAZOLAM. [Concomitant]
     Active Substance: ALPRAZOLAM

REACTIONS (4)
  - Contusion [Unknown]
  - Urinary tract infection [Unknown]
  - Weight increased [Unknown]
  - Pain [Unknown]

NARRATIVE: CASE EVENT DATE: 201512
